FAERS Safety Report 8290577-0 (Version None)
Quarter: 2012Q2

REPORT INFORMATION
  Report Type: 
  Country: None (occurrence: None)
  Receive Date: 20120417
  Receipt Date: 20120223
  Transmission Date: 20120825
  Serious: No
  Sender: FDA-Public Use
  Company Number: US-ASTRAZENECA-2011SE64010

PATIENT
  Age: 52 Year
  Sex: Male

DRUGS (2)
  1. PREVACID [Suspect]
  2. NEXIUM [Suspect]
     Route: 048

REACTIONS (9)
  - NAUSEA [None]
  - MALAISE [None]
  - GASTROOESOPHAGEAL REFLUX DISEASE [None]
  - DRUG DOSE OMISSION [None]
  - DYSPEPSIA [None]
  - ABDOMINAL DISCOMFORT [None]
  - BURNING SENSATION [None]
  - DRUG INEFFECTIVE [None]
  - VOMITING [None]
